FAERS Safety Report 7831800-3 (Version None)
Quarter: 2011Q4

REPORT INFORMATION
  Report Type: 
  Country: None (occurrence: None)
  Receive Date: 20111021
  Receipt Date: 20111017
  Transmission Date: 20120403
  Serious: Yes (Hospitalization)
  Sender: FDA-Public Use
  Company Number: US-B.I. PHARMACEUTICALS,INC./RIDGEFIELD-2011-BP-23264BP

PATIENT
  Sex: Female
  Weight: 67.59 kg

DRUGS (6)
  1. HYDROCHLOROTHIAZIDE [Concomitant]
  2. IMDUR [Concomitant]
  3. PRADAXA [Suspect]
     Indication: ATRIAL FIBRILLATION
     Dosage: 300 MG
     Route: 048
     Dates: start: 20101201, end: 20110806
  4. LEVOXYL [Concomitant]
  5. VICODIN [Concomitant]
  6. VOLATERN (DICLOFENA) [Concomitant]
     Indication: PAIN

REACTIONS (5)
  - DIVERTICULUM INTESTINAL [None]
  - GASTROINTESTINAL HAEMORRHAGE [None]
  - DUODENAL ULCER [None]
  - ANAEMIA [None]
  - GASTRITIS [None]
